FAERS Safety Report 4364559-5 (Version None)
Quarter: 2004Q2

REPORT INFORMATION
  Report Type: 
  Country: None (occurrence: None)
  Receive Date: 20040525
  Receipt Date: 20030801
  Transmission Date: 20050107
  Serious: Yes (Hospitalization)
  Sender: FDA-Public Use
  Company Number: MX-MERCK-0308MEX00005

PATIENT
  Age: 59 Year
  Sex: Male
  Weight: 72 kg

DRUGS (4)
  1. ATORVASTATIN CALCIUM [Suspect]
     Indication: MIXED HYPERLIPIDAEMIA
     Route: 048
     Dates: end: 20030730
  2. ZETIA [Suspect]
     Indication: MIXED HYPERLIPIDAEMIA
     Route: 048
     Dates: start: 20030528, end: 20030729
  3. METFORMIN [Concomitant]
     Indication: DIABETES MELLITUS NON-INSULIN-DEPENDENT
     Route: 048
  4. ROSIGLITAZONE MALEATE [Concomitant]
     Indication: DIABETES MELLITUS NON-INSULIN-DEPENDENT
     Route: 048

REACTIONS (4)
  - ABDOMINAL PAIN [None]
  - MYALGIA [None]
  - MYOPATHY [None]
  - PANCREATITIS [None]
